FAERS Safety Report 25016806 (Version 1)
Quarter: 2025Q1

REPORT INFORMATION
  Report Type: Spontaneous
  Country: DE (occurrence: DE)
  Receive Date: 20250227
  Receipt Date: 20250227
  Transmission Date: 20250408
  Serious: Yes (Other)
  Sender: GLAND PHARMA LTD
  Company Number: DE-GLANDPHARMA-DE-2025GLNLIT00435

PATIENT
  Age: 44 Year
  Sex: Male

DRUGS (3)
  1. KETAMINE HYDROCHLORIDE [Suspect]
     Active Substance: KETAMINE HYDROCHLORIDE
     Indication: Product used for unknown indication
     Route: 065
  2. CHLORPHENIRAMINE MALEATE [Suspect]
     Active Substance: CHLORPHENIRAMINE MALEATE
     Indication: Product used for unknown indication
     Route: 065
  3. AMPHETAMINE [Suspect]
     Active Substance: AMPHETAMINE
     Indication: Product used for unknown indication
     Route: 065

REACTIONS (13)
  - Loss of consciousness [Unknown]
  - Drug abuse [Unknown]
  - Pupillary reflex impaired [Unknown]
  - Lacrimation increased [Unknown]
  - Blepharospasm [Unknown]
  - Miosis [Unknown]
  - Disturbance in attention [Unknown]
  - Psychomotor hyperactivity [Unknown]
  - Agitation [Unknown]
  - Tension [Unknown]
  - Tremor [Unknown]
  - Dry mouth [Unknown]
  - Logorrhoea [Unknown]
